FAERS Safety Report 6464267-0 (Version None)
Quarter: 2009Q4

REPORT INFORMATION
  Report Type: 
  Country: None (occurrence: None)
  Receive Date: 20091120
  Receipt Date: 20090511
  Transmission Date: 20100525
  Serious: Yes (Hospitalization)
  Sender: FDA-Public Use
  Company Number: 632892

PATIENT
  Age: 10 Year
  Sex: Male
  Weight: 26 kg

DRUGS (1)
  1. CELLCEPT (MYCOPHENOLATE MOFETIL) 1.25 ML [Suspect]
     Indication: HYPERSENSITIVITY
     Dosage: 1.5 ML 2 PER DAY
     Dates: start: 20090201

REACTIONS (1)
  - PRURITUS [None]
